FAERS Safety Report 23636072 (Version 2)
Quarter: 2024Q3

REPORT INFORMATION
  Report Type: Spontaneous
  Country: US (occurrence: US)
  Receive Date: 20240315
  Receipt Date: 20240830
  Transmission Date: 20241017
  Serious: Yes (Other)
  Sender: AMGEN
  Company Number: US-HORIZON THERAPEUTICS-HZN-2024-003041

PATIENT
  Sex: Male

DRUGS (23)
  1. TEPEZZA [Suspect]
     Active Substance: TEPROTUMUMAB-TRBW
     Indication: Endocrine ophthalmopathy
     Dosage: 1150 MILLIGRAM (FIRST INFUSION)
     Route: 042
     Dates: start: 20220922
  2. TEPEZZA [Suspect]
     Active Substance: TEPROTUMUMAB-TRBW
     Indication: Graves^ disease
     Dosage: 2336 MILLIGRAM (SECOND INFUSION)
     Route: 042
     Dates: start: 20221019
  3. TEPEZZA [Suspect]
     Active Substance: TEPROTUMUMAB-TRBW
     Dosage: 2300 MILLIGRAM (THIRD INFUSION)
     Route: 042
     Dates: start: 20221109
  4. TEPEZZA [Suspect]
     Active Substance: TEPROTUMUMAB-TRBW
     Dosage: 2336 MILLIGRAM (FOURTH INFUSION)
     Route: 042
     Dates: start: 20221201
  5. TEPEZZA [Suspect]
     Active Substance: TEPROTUMUMAB-TRBW
     Dosage: 2355 MILLIGRAM (FIFTH INFUSION)
     Route: 042
     Dates: start: 20221222
  6. TEPEZZA [Suspect]
     Active Substance: TEPROTUMUMAB-TRBW
     Dosage: 2355 MILLIGRAM (SIXTH INFUSION)
     Route: 042
     Dates: start: 20230112
  7. TEPEZZA [Suspect]
     Active Substance: TEPROTUMUMAB-TRBW
     Dosage: 2355 MILLIGRAM (SEVENTH INFUSION)
     Route: 042
     Dates: start: 20230202
  8. TEPEZZA [Suspect]
     Active Substance: TEPROTUMUMAB-TRBW
     Dosage: 2427 MILLIGRAM (EIGHTH INFUSION)
     Route: 042
     Dates: start: 20230223
  9. CRESTOR [Concomitant]
     Active Substance: ROSUVASTATIN CALCIUM
     Dosage: 20 MILLIGRAM, QD
     Route: 048
  10. PROPRANOLOL [Concomitant]
     Active Substance: PROPRANOLOL HYDROCHLORIDE
     Dosage: 20 MILLIGRAM, QD
     Route: 048
  11. ONDANSETRON [Concomitant]
     Active Substance: ONDANSETRON
     Dosage: 8 MILLIGRAM, QD
     Route: 048
  12. ONDANSETRON [Concomitant]
     Active Substance: ONDANSETRON
     Dosage: 4 MILLIGRAM
     Route: 042
  13. ADDERALL [Concomitant]
     Active Substance: AMPHETAMINE ASPARTATE\AMPHETAMINE SULFATE\DEXTROAMPHETAMINE SACCHARATE\DEXTROAMPHETAMINE SULFATE
     Dosage: 20 MILLIGRAM, QD (1- 2 TABLETS)
     Route: 048
  14. BUPRENORPHINE [Concomitant]
     Active Substance: BUPRENORPHINE
     Dosage: 15 MICROGRAM, QWK
  15. HYDROCHLOROTHIAZIDE\TRIAMTERENE [Concomitant]
     Active Substance: HYDROCHLOROTHIAZIDE\TRIAMTERENE
     Dosage: UNK UNK, QD
     Route: 048
  16. TRAMADOL HCL [Concomitant]
     Active Substance: TRAMADOL HYDROCHLORIDE
     Dosage: 50 MILLIGRAM, QD (2 TABLETS)
  17. QUETIAPINE FUMARATE [Concomitant]
     Active Substance: QUETIAPINE FUMARATE
     Dosage: 25 MILLIGRAM, QD (1 TABLET)
     Route: 048
  18. CLARITIN [Concomitant]
     Active Substance: LORATADINE
     Dosage: 10 MILLIGRAM
  19. PAROXETINE [Concomitant]
     Active Substance: PAROXETINE
     Dosage: 10 MILLIGRAM
     Route: 048
  20. CLOBETASOL [Concomitant]
     Active Substance: CLOBETASOL
     Route: 061
  21. MONTELUKAST [Concomitant]
     Active Substance: MONTELUKAST SODIUM
     Dosage: 10 MILLIGRAM
     Route: 048
  22. ROSUVASTATIN CALCIUM [Concomitant]
     Active Substance: ROSUVASTATIN CALCIUM
     Dosage: 20 MILLIGRAM
     Route: 048
  23. CLONAZEPAM [Concomitant]
     Active Substance: CLONAZEPAM
     Dosage: 2 MILLIGRAM
     Route: 048

REACTIONS (27)
  - Syncope [Unknown]
  - Mixed deafness [Not Recovered/Not Resolved]
  - Deafness neurosensory [Not Recovered/Not Resolved]
  - Emotional distress [Unknown]
  - Condition aggravated [Unknown]
  - Anxiety [Unknown]
  - Discomfort [Unknown]
  - Product quality issue [Unknown]
  - Sinusitis [Unknown]
  - Vasculitis [Unknown]
  - Incision site cellulitis [Unknown]
  - Vision blurred [Unknown]
  - Dizziness [Unknown]
  - Vertigo [Unknown]
  - Dysarthria [Unknown]
  - Poor quality sleep [Unknown]
  - Neck pain [Unknown]
  - Depression [Unknown]
  - Impaired healing [Not Recovered/Not Resolved]
  - Anxiety [Unknown]
  - Lacrimation increased [Unknown]
  - Joint stiffness [Unknown]
  - Constipation [Unknown]
  - Tinnitus [Unknown]
  - Headache [Unknown]
  - Fatigue [Unknown]
  - Muscle spasms [Unknown]
